FAERS Safety Report 13585938 (Version 8)
Quarter: 2017Q3

REPORT INFORMATION
  Report Type: Report from Study
  Country: IE (occurrence: IE)
  Receive Date: 20170526
  Receipt Date: 20170908
  Transmission Date: 20171127
  Serious: Yes (Hospitalization)
  Sender: FDA-Public Use
  Company Number: IE-PFIZER INC-2017230598

PATIENT
  Age: 70 Year
  Sex: Male
  Weight: 68 kg

DRUGS (25)
  1. PEMBROLIZUMAB. [Suspect]
     Active Substance: PEMBROLIZUMAB
     Dosage: 200 MG, EVERY 3 WEEKS
     Route: 042
     Dates: start: 20170316, end: 20170316
  2. ADENURIC [Concomitant]
     Active Substance: FEBUXOSTAT
     Dosage: 80 MG, UNK
     Dates: start: 201701
  3. PROCORALAN [Concomitant]
     Active Substance: IVABRADINE
     Dosage: 5 MG, UNK
     Dates: start: 201701
  4. OXYNORM [Concomitant]
     Active Substance: OXYCODONE HYDROCHLORIDE
     Dosage: 5 MG, UNK
     Dates: start: 20170412, end: 20170506
  5. FLIXOTIDE [Concomitant]
     Active Substance: FLUTICASONE PROPIONATE
     Dosage: 250 UG, UNK
     Dates: start: 201701
  6. IMODIUM [Concomitant]
     Active Substance: LOPERAMIDE HYDROCHLORIDE
     Dosage: 1 MG, UNK
     Dates: start: 20170131
  7. COLGOUT [Concomitant]
     Active Substance: COLCHICINE
     Dosage: 500 MG, UNK
     Dates: start: 20170215
  8. MOVICOL [Concomitant]
     Active Substance: POLYETHYLENE GLYCOL 3350\POTASSIUM CHLORIDE\SODIUM BICARBONATE\SODIUM CHLORIDE
     Dosage: 2 DF, UNK
     Dates: start: 20170414
  9. AXITINIB [Suspect]
     Active Substance: AXITINIB
     Indication: METASTATIC RENAL CELL CARCINOMA
     Dosage: 5 MG, 2X/DAY, CYCLIC
     Route: 048
     Dates: start: 20170131, end: 20170405
  10. AXITINIB [Suspect]
     Active Substance: AXITINIB
     Dosage: 5 MG, 2X/DAY, CYCLIC
     Route: 048
     Dates: start: 20170503, end: 20170517
  11. SPIRIVA [Concomitant]
     Active Substance: TIOTROPIUM BROMIDE MONOHYDRATE
     Dosage: 18 UG, UNK
     Dates: start: 201701
  12. PEMBROLIZUMAB. [Suspect]
     Active Substance: PEMBROLIZUMAB
     Indication: METASTATIC RENAL CELL CARCINOMA
     Dosage: 200 MG, EVERY 3 WEEKS (INFUSION VOLUME 108 ML)
     Route: 042
     Dates: start: 20170131, end: 20170223
  13. VALSARTAN TEVA [Concomitant]
     Active Substance: VALSARTAN
     Dosage: 160 MG, UNK
     Dates: start: 201701, end: 20170523
  14. FORMOTEROL FUMARATE [Concomitant]
     Active Substance: FORMOTEROL FUMARATE
     Dosage: 2 DF, UNK
     Dates: start: 20170414
  15. NU-SEALS [Concomitant]
     Dosage: 75 MG, UNK
     Dates: start: 201701
  16. SENOKOT [Concomitant]
     Active Substance: SENNOSIDES
     Dosage: 2 DF, UNK
     Dates: start: 20170414
  17. ELANTAN [Concomitant]
     Active Substance: ISOSORBIDE MONONITRATE
     Dosage: 25 MG, UNK
     Dates: start: 201701
  18. CREAM E45 [Concomitant]
     Active Substance: LANOLIN\LIGHT MINERAL OIL\PARAFFIN
     Dosage: 1 DF, UNK
     Dates: start: 20170224
  19. AUGMENTIN [Concomitant]
     Active Substance: AMOXICILLIN\CLAVULANATE POTASSIUM
     Indication: LOWER RESPIRATORY TRACT INFECTION
     Dosage: 625 MG, UNK
     Dates: start: 20170508, end: 20170514
  20. OXIS [Concomitant]
     Active Substance: FORMOTEROL FUMARATE
     Dosage: 12 UG, UNK
     Dates: start: 201701
  21. AMLODIPINE [Concomitant]
     Active Substance: AMLODIPINE BESYLATE
     Dosage: 5 MG, UNK
     Dates: start: 201701, end: 20170524
  22. CYCLIZINE [Concomitant]
     Active Substance: CYCLIZINE
     Dosage: 30 MG, UNK
     Dates: start: 20170131
  23. PANTOPRAZOLE [Concomitant]
     Active Substance: PANTOPRAZOLE
     Dosage: 40 MG, UNK
     Dates: start: 20170410
  24. ACETAMINOPHEN AND CODEINE [Concomitant]
     Active Substance: ACETAMINOPHEN\CODEINE PHOSPHATE
     Dosage: 2 DF, UNK
     Dates: start: 20170331, end: 201705
  25. FRESUBIN ENERGY /07459701/ [Concomitant]
     Dosage: 1 DF, UNK
     Dates: start: 20170224, end: 20170628

REACTIONS (1)
  - Gait disturbance [Recovered/Resolved]

NARRATIVE: CASE EVENT DATE: 20170517
